FAERS Safety Report 6860320-8 (Version None)
Quarter: 2010Q3

REPORT INFORMATION
  Report Type: 
  Country: None (occurrence: None)
  Receive Date: 20100719
  Receipt Date: 20100719
  Transmission Date: 20110219
  Serious: Yes (Hospitalization)
  Sender: FDA-Public Use
  Company Number: None

PATIENT
  Age: 68 Year
  Sex: Male
  Weight: 80.3 kg

DRUGS (8)
  1. CITALOPRAM 40 MG [Suspect]
     Indication: DEPRESSION
     Dosage: 40 MG DAILY PO
     Route: 048
     Dates: start: 20100705, end: 20100710
  2. ASPIRIN [Concomitant]
  3. HYDROCHLOROTHIAZIDE [Concomitant]
  4. NYSTATIN [Concomitant]
  5. PRILOSEC [Concomitant]
  6. TRIAMCINOLONE [Concomitant]
  7. VYTORIN [Concomitant]
  8. ZESTRIL [Concomitant]

REACTIONS (5)
  - AGITATION [None]
  - BALANCE DISORDER [None]
  - GAIT DISTURBANCE [None]
  - INAPPROPRIATE ANTIDIURETIC HORMONE SECRETION [None]
  - INCORRECT DOSE ADMINISTERED [None]
